FAERS Safety Report 18442433 (Version 1)
Quarter: 2020Q4

REPORT INFORMATION
  Report Type: Report from Study
  Country: DE (occurrence: DE)
  Receive Date: 20201029
  Receipt Date: 20201029
  Transmission Date: 20210114
  Serious: Yes (Disabling)
  Sender: FDA-Public Use
  Company Number: DE-UCBSA-2019024141

PATIENT
  Age: 78 Year
  Sex: Male

DRUGS (3)
  1. ROTIGOTINE [Suspect]
     Active Substance: ROTIGOTINE
     Indication: RESTLESS LEGS SYNDROME
     Dosage: 2 MILLIGRAM, ONCE DAILY (QD)
     Route: 062
     Dates: start: 20190201, end: 20200802
  2. PREDNITOP [Concomitant]
     Indication: PRODUCT USED FOR UNKNOWN INDICATION
  3. CICAPLAST [Concomitant]
     Indication: ERYTHEMA

REACTIONS (9)
  - Skin disorder [Unknown]
  - Drug ineffective [Unknown]
  - Erythema [Not Recovered/Not Resolved]
  - Skin ulcer [Recovering/Resolving]
  - Product adhesion issue [Unknown]
  - Application site erythema [Not Recovered/Not Resolved]
  - Restless legs syndrome [Recovering/Resolving]
  - Wrong technique in product usage process [Unknown]
  - Application site reaction [Not Recovered/Not Resolved]

NARRATIVE: CASE EVENT DATE: 2019
